FAERS Safety Report 12648665 (Version 2)
Quarter: 2016Q3

REPORT INFORMATION
  Report Type: Spontaneous
  Country: JP (occurrence: JP)
  Receive Date: 20160812
  Receipt Date: 20160818
  Transmission Date: 20161109
  Serious: Yes (Hospitalization, Other)
  Sender: FDA-Public Use
  Company Number: JP-SA-2016SA145272

PATIENT
  Age: 22 Year
  Sex: Male

DRUGS (9)
  1. PREDNISOLONE. [Suspect]
     Active Substance: PREDNISOLONE
     Indication: NEPHROTIC SYNDROME
     Route: 065
  2. MIZORIBINE [Suspect]
     Active Substance: MIZORIBINE
     Indication: NEPHROTIC SYNDROME
     Route: 065
     Dates: start: 2005
  3. PANITUMUMAB [Suspect]
     Active Substance: PANITUMUMAB
     Indication: RECTAL ADENOCARCINOMA
     Route: 065
     Dates: start: 2014
  4. FLUOROURACIL. [Suspect]
     Active Substance: FLUOROURACIL
     Indication: RECTAL ADENOCARCINOMA
     Dosage: MODIFIED FOLFOX6
     Route: 065
     Dates: start: 2014
  5. CYCLOSPORINE. [Suspect]
     Active Substance: CYCLOSPORINE
     Indication: NEPHROTIC SYNDROME
     Route: 065
     Dates: start: 2005
  6. MESALAZINE [Suspect]
     Active Substance: MESALAMINE
     Indication: COLITIS ULCERATIVE
     Route: 065
     Dates: start: 2000
  7. PREDNISOLONE. [Suspect]
     Active Substance: PREDNISOLONE
     Indication: NEPHROTIC SYNDROME
     Route: 065
     Dates: start: 2005
  8. OXALIPLATIN. [Suspect]
     Active Substance: OXALIPLATIN
     Indication: RECTAL ADENOCARCINOMA
     Dosage: MODIFIED FOLFOX6
     Route: 065
     Dates: start: 2014
  9. LEUCOVORIN. [Suspect]
     Active Substance: LEUCOVORIN
     Indication: RECTAL ADENOCARCINOMA
     Dosage: MODIFIED FOLFOX6
     Route: 065
     Dates: start: 2014

REACTIONS (22)
  - Dyspnoea [Recovered/Resolved]
  - Blood albumin decreased [Recovered/Resolved]
  - Proteinuria [Recovered/Resolved]
  - Rectal adenocarcinoma [Recovered/Resolved]
  - Lymphadenopathy [Recovered/Resolved]
  - Rectal lesion [Recovered/Resolved]
  - Protein total decreased [Recovered/Resolved]
  - Blood urea increased [Recovered/Resolved]
  - Generalised oedema [Recovered/Resolved]
  - Biopsy kidney abnormal [Recovered/Resolved]
  - Abdominal pain [Recovered/Resolved]
  - Metastases to lymph nodes [Recovered/Resolved]
  - Rectal stenosis [Recovered/Resolved]
  - Drug resistance [Unknown]
  - Nephrotic syndrome [Recovered/Resolved]
  - Abdominal distension [Recovered/Resolved]
  - Carbohydrate antigen 19-9 increased [Recovered/Resolved]
  - Weight increased [Recovered/Resolved]
  - Carcinoembryonic antigen increased [Recovered/Resolved]
  - Blood creatinine increased [Recovered/Resolved]
  - Neuropathy peripheral [Unknown]
  - Rash [Unknown]

NARRATIVE: CASE EVENT DATE: 2005
